FAERS Safety Report 5348419-9 (Version None)
Quarter: 2007Q2

REPORT INFORMATION
  Report Type: 
  Country: None (occurrence: None)
  Receive Date: 20070605
  Receipt Date: 20070524
  Transmission Date: 20071010
  Serious: Yes (Hospitalization)
  Sender: FDA-Public Use
  Company Number: GXKR2007GB04632

PATIENT
  Age: 65 Year
  Sex: Female

DRUGS (5)
  1. DICLOFENAC [Suspect]
     Dosage: 50 MG, TID
  2. FOLIC ACID [Concomitant]
  3. HYDROCORTISONE                     (HYDROCORTISONE) [Concomitant]
  4. METHOTREXATE [Concomitant]
  5. RANITIDINE [Concomitant]

REACTIONS (7)
  - ABDOMINAL SEPSIS [None]
  - COLONIC STENOSIS [None]
  - DIARRHOEA [None]
  - LARGE INTESTINE PERFORATION [None]
  - MUCOSAL ULCERATION [None]
  - PNEUMOPERITONEUM [None]
  - VOMITING [None]
